FAERS Safety Report 17823308 (Version 1)
Quarter: 2020Q2

REPORT INFORMATION
  Report Type: Spontaneous
  Country: US (occurrence: US)
  Receive Date: 20200522
  Receipt Date: 20200522
  Transmission Date: 20200714
  Serious: No
  Sender: FDA-Public Use
  Company Number: None

PATIENT
  Age: 81 Year
  Sex: Male

DRUGS (1)
  1. SCOPOLAMINE (SCOPOLAMINE 0.33MG/24HRS PATCH) [Suspect]
     Active Substance: SCOPOLAMINE
     Indication: PRODUCT USED FOR UNKNOWN INDICATION
     Dosage: ?          OTHER DOSE:1 UNIT;OTHER FREQUENCY:UD;OTHER ROUTE:TOP?
     Dates: start: 20200302, end: 20200311

REACTIONS (1)
  - Delirium [None]

NARRATIVE: CASE EVENT DATE: 20200311
